FAERS Safety Report 10081319 (Version 2)
Quarter: 2025Q1

REPORT INFORMATION
  Report Type: Report from Study
  Country: GB (occurrence: GB)
  Receive Date: 20140416
  Receipt Date: 20250307
  Transmission Date: 20250408
  Serious: Yes (Death, Congenital Anomaly)
  Sender: UCB
  Company Number: GB-UCBSA-117897

PATIENT
  Age: 0 Year
  Sex: Male

DRUGS (5)
  1. LEVETIRACETAM [Suspect]
     Active Substance: LEVETIRACETAM
     Indication: Epilepsy
     Route: 064
     Dates: start: 201107
  2. LEVETIRACETAM [Suspect]
     Active Substance: LEVETIRACETAM
     Route: 064
     Dates: start: 2011, end: 2012
  3. LAMOTRIGINE [Suspect]
     Active Substance: LAMOTRIGINE
     Indication: Epilepsy
     Route: 064
     Dates: start: 201107
  4. LAMOTRIGINE [Suspect]
     Active Substance: LAMOTRIGINE
     Route: 064
     Dates: start: 2011, end: 2012
  5. FOLIC ACID [Concomitant]
     Active Substance: FOLIC ACID
     Indication: Product used for unknown indication
     Dates: start: 20110309

REACTIONS (3)
  - Trisomy 18 [Fatal]
  - Maternal exposure during pregnancy [Unknown]
  - Maternal exposure before pregnancy [Unknown]

NARRATIVE: CASE EVENT DATE: 20110701
